FAERS Safety Report 20453951 (Version 1)
Quarter: 2022Q1

REPORT INFORMATION
  Report Type: Report from Study
  Country: CO (occurrence: CO)
  Receive Date: 20220210
  Receipt Date: 20220210
  Transmission Date: 20220423
  Serious: Yes (Other)
  Sender: FDA-Public Use
  Company Number: CO-JNJFOC-20220209373

PATIENT
  Age: 38 Year
  Sex: Male
  Weight: 89 kg

DRUGS (5)
  1. SIMPONI [Suspect]
     Active Substance: GOLIMUMAB
     Indication: Ankylosing spondylitis
     Route: 058
     Dates: start: 20160129
  2. SIMPONI [Suspect]
     Active Substance: GOLIMUMAB
     Route: 058
     Dates: start: 20190628
  3. MODERNA COVID-19 VACCINE [Suspect]
     Active Substance: ELASOMERAN
  4. DOLEX CONTRA LOS SINTOMAS DE LA GRIPA [Concomitant]
  5. ABRILAR [SALMETEROL XINAFOATE] [Concomitant]

REACTIONS (2)
  - Ankylosing spondylitis [Not Recovered/Not Resolved]
  - COVID-19 [Not Recovered/Not Resolved]

NARRATIVE: CASE EVENT DATE: 20211201
